FAERS Safety Report 9626959 (Version 7)
Quarter: 2014Q2

REPORT INFORMATION
  Report Type: Report from Study
  Country: GB (occurrence: GB)
  Receive Date: 20131016
  Receipt Date: 20140528
  Transmission Date: 20141212
  Serious: Yes (Hospitalization)
  Sender: FDA-Public Use
  Company Number: GB-ROCHE-1287029

PATIENT
  Age: 44 Year
  Sex: Female
  Weight: 64.1 kg

DRUGS (12)
  1. BEVACIZUMAB [Suspect]
     Indication: COLORECTAL CANCER METASTATIC
     Route: 042
     Dates: start: 20130923
  2. CO-AMOXICLAV [Concomitant]
     Indication: LOWER RESPIRATORY TRACT INFECTION
     Dosage: 500/125 MG
     Route: 048
     Dates: start: 20130926, end: 20131003
  3. LANSOPRAZOLE [Concomitant]
     Indication: HIATUS HERNIA
     Route: 048
  4. LANSOPRAZOLE [Concomitant]
     Indication: GASTRITIS
  5. MACROGOL [Concomitant]
     Indication: CONSTIPATION
     Dosage: 1 SATCHET
     Route: 048
  6. PARACETAMOL [Concomitant]
     Indication: PAIN
     Route: 048
  7. PARACETAMOL [Concomitant]
     Dosage: ORAL/INTRAVENOUS
     Route: 065
  8. AMLODIPINE [Concomitant]
     Indication: HYPERTENSION
     Route: 048
     Dates: start: 20131125
  9. FERROUS FUMARATE [Concomitant]
     Indication: IRON DEFICIENCY ANAEMIA
     Route: 048
  10. METOCLOPRAMIDE [Concomitant]
     Indication: NAUSEA
     Dosage: AS REQUIRED
     Route: 048
     Dates: start: 20131229
  11. SALBUTAMOL [Concomitant]
     Indication: ASTHMA
     Dosage: 2 PUFFS AS REQUIRED
     Route: 055
  12. BECLOMETHASONE [Concomitant]
     Indication: ASTHMA
     Dosage: 2 PUFFS
     Route: 055

REACTIONS (4)
  - Lower respiratory tract infection [Recovered/Resolved]
  - Chest pain [Recovered/Resolved]
  - Pyrexia [Recovered/Resolved]
  - Abdominal pain [Recovered/Resolved]
